FAERS Safety Report 7878462-7 (Version None)
Quarter: 2011Q4

REPORT INFORMATION
  Report Type: 
  Country: None (occurrence: None)
  Receive Date: 20111028
  Receipt Date: 20111014
  Transmission Date: 20120403
  Serious: Yes (Disabling, Other)
  Sender: FDA-Public Use
  Company Number: 2011MA015124

PATIENT
  Sex: Female

DRUGS (1)
  1. METOCLOPRAMIDE [Suspect]

REACTIONS (14)
  - ANXIETY [None]
  - PAIN [None]
  - EMOTIONAL DISTRESS [None]
  - NERVOUS SYSTEM DISORDER [None]
  - EXTRAPYRAMIDAL DISORDER [None]
  - ECONOMIC PROBLEM [None]
  - MENTAL DISORDER [None]
  - DYSKINESIA [None]
  - DEFORMITY [None]
  - TARDIVE DYSKINESIA [None]
  - ANHEDONIA [None]
  - MULTIPLE INJURIES [None]
  - ACTIVITIES OF DAILY LIVING IMPAIRED [None]
  - DISABILITY [None]
